FAERS Safety Report 25982815 (Version 1)
Quarter: 2025Q4

REPORT INFORMATION
  Report Type: Spontaneous
  Country: GB (occurrence: GB)
  Receive Date: 20251031
  Receipt Date: 20251031
  Transmission Date: 20260118
  Serious: Yes (Hospitalization, Other)
  Sender: MICRO LABS LIMITED
  Company Number: GB-MICRO LABS LIMITED-ML2025-05576

PATIENT
  Age: 68 Year
  Sex: Male

DRUGS (1)
  1. APIXABAN [Suspect]
     Active Substance: APIXABAN
     Indication: Cardiac ventricular thrombosis
     Dates: start: 202504, end: 202507

REACTIONS (2)
  - Ischaemic stroke [Unknown]
  - Drug ineffective [Unknown]

NARRATIVE: CASE EVENT DATE: 20250701
